FAERS Safety Report 10696156 (Version 2)
Quarter: 2018Q1

REPORT INFORMATION
  Report Type: Spontaneous
  Country: US (occurrence: US)
  Receive Date: 20150107
  Receipt Date: 20180118
  Transmission Date: 20180508
  Serious: Yes (Hospitalization, Other)
  Sender: FDA-Public Use
  Company Number: US-BAYER-2015-001679

PATIENT
  Age: 29 Year
  Sex: Female

DRUGS (3)
  1. MIRENA [Suspect]
     Active Substance: LEVONORGESTREL
     Indication: CONTRACEPTION
     Dosage: 20 MCG/24HR, CONT
     Route: 015
     Dates: start: 20120131, end: 20160114
  2. MIRENA [Suspect]
     Active Substance: LEVONORGESTREL
  3. DEPO-PROVERA [Concomitant]
     Active Substance: MEDROXYPROGESTERONE ACETATE
     Dosage: UNK
     Dates: start: 20070101, end: 20140304

REACTIONS (7)
  - Uterine perforation [None]
  - Device issue [Not Recovered/Not Resolved]
  - Pain [None]
  - Ovarian cyst [Recovering/Resolving]
  - Depression [None]
  - Abdominal pain [Recovering/Resolving]
  - Anxiety [None]

NARRATIVE: CASE EVENT DATE: 20120109
